FAERS Safety Report 11074606 (Version 1)
Quarter: 2015Q2

REPORT INFORMATION
  Report Type: Other
  Country: JP (occurrence: JP)
  Receive Date: 20150429
  Receipt Date: 20150429
  Transmission Date: 20150821
  Serious: Yes (Other)
  Sender: FDA-Public Use
  Company Number: JP-ACTELION-A-CH2015-116723

PATIENT
  Age: 76 Year
  Sex: Female

DRUGS (1)
  1. TRACLEER [Suspect]
     Active Substance: BOSENTAN\BOSENTAN MONOHYDRATE
     Indication: PULMONARY ARTERIAL HYPERTENSION
     Route: 048

REACTIONS (6)
  - Aortic valve stenosis [Unknown]
  - Concomitant disease aggravated [Unknown]
  - Pulmonary arterial hypertension [Unknown]
  - Aortic valve replacement [Unknown]
  - Condition aggravated [Unknown]
  - Cardiac failure [Unknown]
